FAERS Safety Report 4281824-0 (Version None)
Quarter: 2004Q1

REPORT INFORMATION
  Report Type: 
  Country: None (occurrence: None)
  Receive Date: 20040128
  Receipt Date: 20040114
  Transmission Date: 20041129
  Serious: Yes (Other)
  Sender: FDA-Public Use
  Company Number: A-CH2004-04132

PATIENT
  Age: 66 Year
  Sex: Male
  Weight: 74 kg

DRUGS (9)
  1. TRACLEER [Suspect]
     Indication: PULMONARY HYPERTENSION
     Dosage: 62.5 + 125 MG, BID, UNK
     Dates: start: 20031029, end: 20031125
  2. TRACLEER [Suspect]
     Indication: PULMONARY HYPERTENSION
     Dosage: 62.5 + 125 MG, BID, UNK
     Dates: start: 20031126, end: 20040102
  3. ACETYLSALICYLIC ACID SRT [Concomitant]
  4. AMLODIPINE [Concomitant]
  5. CARVEDILOL [Concomitant]
  6. LOSARTAN (LOSARTAN) [Concomitant]
  7. TORSEMIDE [Concomitant]
  8. FLUVASTATIN (FLUVASTATIN) [Concomitant]
  9. PHENPROCOUMON (PHENPROCOUMON) [Concomitant]

REACTIONS (3)
  - ALANINE AMINOTRANSFERASE INCREASED [None]
  - ASPARTATE AMINOTRANSFERASE INCREASED [None]
  - LIVER FUNCTION TEST ABNORMAL [None]
